FAERS Safety Report 16029762 (Version 2)
Quarter: 2019Q2

REPORT INFORMATION
  Report Type: Spontaneous
  Country: NL (occurrence: NL)
  Receive Date: 20190304
  Receipt Date: 20190405
  Transmission Date: 20190711
  Serious: Yes (Hospitalization, Other)
  Sender: FDA-Public Use
  Company Number: NL-JNJFOC-20190238322

PATIENT
  Age: 53 Year
  Sex: Male

DRUGS (2)
  1. RISPERIDONE. [Suspect]
     Active Substance: RISPERIDONE
     Indication: SCHIZOPHRENIA
     Route: 065
  2. DEXAMFETAMINE [Suspect]
     Active Substance: DEXTROAMPHETAMINE
     Indication: AUTISM SPECTRUM DISORDER
     Route: 065

REACTIONS (3)
  - Neutrophil hypersegmented morphology present [Recovered/Resolved]
  - Loss of consciousness [Recovered/Resolved]
  - Hyperthermia [Recovered/Resolved]
